FAERS Safety Report 4368152-X (Version None)
Quarter: 2004Q2

REPORT INFORMATION
  Report Type: 
  Country: None (occurrence: None)
  Receive Date: 20040602
  Receipt Date: 20040227
  Transmission Date: 20050107
  Serious: Yes (Hospitalization, Other)
  Sender: FDA-Public Use
  Company Number: PHBS2004JP02922

PATIENT
  Age: 78 Year
  Sex: Male

DRUGS (13)
  1. GLEEVEC [Suspect]
     Indication: CHRONIC MYELOID LEUKAEMIA
     Dosage: 600 MG, QD
     Route: 048
     Dates: start: 20040121, end: 20040212
  2. GLEEVEC [Suspect]
     Dosage: 400 MG/D
     Route: 048
     Dates: start: 20040213, end: 20040408
  3. GLEEVEC [Suspect]
     Dosage: UNK, UNK
     Route: 048
  4. GLEEVEC [Suspect]
     Dosage: 600 MG/D
     Route: 048
     Dates: start: 20040414
  5. MAXIPIME [Concomitant]
     Dosage: 2 G/D
     Route: 042
     Dates: start: 20040116, end: 20040119
  6. MEROPEN [Concomitant]
     Dosage: 1 G/D
     Route: 042
     Dates: start: 20040120, end: 20040129
  7. BAKTAR [Concomitant]
     Dosage: 2 DF/D
     Route: 048
     Dates: start: 20040122
  8. CRAVIT [Concomitant]
     Dosage: 3G/D
     Route: 048
     Dates: start: 20040130, end: 20040304
  9. MINOMYCIN [Concomitant]
     Dosage: 100 MG/D
     Route: 048
     Dates: start: 20040203, end: 20040223
  10. MAXIPIME [Concomitant]
     Dosage: 2 G/D
     Route: 048
     Dates: start: 20040224, end: 20040229
  11. GRAN [Concomitant]
     Dosage: 75 UG/D
     Route: 058
     Dates: start: 20040218
  12. GRAN [Concomitant]
     Dosage: 75 UG/D
     Route: 058
  13. ROHYPNOL [Concomitant]
     Dosage: 1 MG/D
     Route: 048
     Dates: start: 20040106, end: 20040318

REACTIONS (12)
  - ANAEMIA [None]
  - BLAST CELL CRISIS [None]
  - BLOOD AMYLASE INCREASED [None]
  - BLOOD SODIUM DECREASED [None]
  - CHLOROMA [None]
  - DYSPNOEA [None]
  - HYPONATRAEMIA [None]
  - LEUKOPENIA [None]
  - LIPASE INCREASED [None]
  - PANCREATIC DISORDER [None]
  - PANCREATITIS [None]
  - THROMBOCYTOPENIA [None]
